FAERS Safety Report 5416285-9 (Version None)
Quarter: 2007Q3

REPORT INFORMATION
  Report Type: 
  Country: None (occurrence: None)
  Receive Date: 20070718
  Receipt Date: 20070223
  Transmission Date: 20080115
  Serious: Yes (Other)
  Sender: FDA-Public Use
  Company Number: 2007014920

PATIENT
  Age: 28 Year
  Sex: Female
  Weight: 127 kg

DRUGS (3)
  1. CELEBREX [Suspect]
     Indication: NERVOUS SYSTEM DISORDER
     Dosage: 200 MG (200 MG, 1 IN 1 D), ORAL
     Route: 048
     Dates: start: 20070110, end: 20070110
  2. LORTAB [Concomitant]
  3. PROTONIX [Concomitant]

REACTIONS (2)
  - DYSPNOEA [None]
  - HYPERSENSITIVITY [None]
